FAERS Safety Report 25745421 (Version 1)
Quarter: 2025Q3

REPORT INFORMATION
  Report Type: Spontaneous
  Country: US (occurrence: US)
  Receive Date: 20250901
  Receipt Date: 20250901
  Transmission Date: 20251020
  Serious: No
  Sender: AMGEN
  Company Number: US-AMGEN-USASL2025170999

PATIENT
  Age: 53 Year
  Sex: Male

DRUGS (1)
  1. REPATHA [Suspect]
     Active Substance: EVOLOCUMAB
     Indication: Low density lipoprotein increased
     Dosage: 140 MILLIGRAM, Q2WK
     Route: 065

REACTIONS (5)
  - Injection site pain [Unknown]
  - Accidental exposure to product [Unknown]
  - Drug dose omission by device [Unknown]
  - Intercepted product preparation error [Unknown]
  - Device use error [Unknown]

NARRATIVE: CASE EVENT DATE: 20250801
